FAERS Safety Report 16361014 (Version 1)
Quarter: 2019Q3

REPORT INFORMATION
  Report Type: Spontaneous
  Country: US (occurrence: US)
  Receive Date: 20190524
  Receipt Date: 20190524
  Transmission Date: 20191004
  Serious: Yes (Life-Threatening)
  Sender: FDA-Public Use
  Company Number: None

PATIENT
  Age: 49 Year
  Sex: Male
  Weight: 81.6 kg

DRUGS (4)
  1. METOPROLOL. [Concomitant]
     Active Substance: METOPROLOL
     Dates: start: 20180803, end: 20180806
  2. CLEVIPREX [Suspect]
     Active Substance: CLEVIDIPINE
     Indication: HYPERTENSION
     Dosage: ?          OTHER FREQUENCY:TITRATE;?
     Route: 041
     Dates: start: 20180803, end: 20180804
  3. NICARDIPINE [Concomitant]
     Active Substance: NICARDIPINE
     Dates: start: 20180805, end: 20180806
  4. FAMOTIDINE. [Concomitant]
     Active Substance: FAMOTIDINE
     Dates: start: 20180803, end: 20180806

REACTIONS (2)
  - Respiratory distress [None]
  - Hypoxia [None]

NARRATIVE: CASE EVENT DATE: 20180804
